FAERS Safety Report 7305143-0 (Version None)
Quarter: 2011Q1

REPORT INFORMATION
  Report Type: 
  Country: None (occurrence: None)
  Receive Date: 20110222
  Receipt Date: 20110214
  Transmission Date: 20110831
  Serious: Yes (Hospitalization, Other)
  Sender: FDA-Public Use
  Company Number: US-SANOFI-AVENTIS-2010SA073882

PATIENT
  Age: 82 Year
  Sex: Female

DRUGS (4)
  1. MULTAQ [Suspect]
     Indication: ATRIAL FIBRILLATION
     Route: 048
     Dates: start: 20100621, end: 20100702
  2. WARFARIN [Concomitant]
     Indication: ATRIAL FIBRILLATION
  3. LIPITOR [Concomitant]
  4. LEXAPRO [Concomitant]

REACTIONS (4)
  - TORSADE DE POINTES [None]
  - VENTRICULAR TACHYCARDIA [None]
  - CARDIAC ARREST [None]
  - SINUS BRADYCARDIA [None]
